FAERS Safety Report 17895861 (Version 2)
Quarter: 2020Q2

REPORT INFORMATION
  Report Type: Report from Study
  Country: US (occurrence: US)
  Receive Date: 20200615
  Receipt Date: 20200615
  Transmission Date: 20200714
  Serious: Yes (Other)
  Sender: FDA-Public Use
  Company Number: US-CELGENEUS-USA-20200602327

PATIENT
  Age: 76 Year
  Sex: Male
  Weight: 91.6 kg

DRUGS (1)
  1. VIDAZA [Suspect]
     Active Substance: AZACITIDINE
     Indication: MYELODYSPLASTIC SYNDROME
     Dosage: 50 MILLIGRAM/SQ. METER
     Route: 058
     Dates: start: 20170801, end: 20181109

REACTIONS (4)
  - Lower gastrointestinal haemorrhage [Unknown]
  - Cholelithiasis [Unknown]
  - Cardiac failure [Unknown]
  - Chest pain [Unknown]

NARRATIVE: CASE EVENT DATE: 20170910
